FAERS Safety Report 11663122 (Version 1)
Quarter: 2015Q4

REPORT INFORMATION
  Report Type: Spontaneous
  Country: US (occurrence: US)
  Receive Date: 20151027
  Receipt Date: 20151027
  Transmission Date: 20160304
  Serious: No
  Sender: FDA-Public Use
  Company Number: US-MEDA-2011020117

PATIENT
  Sex: Male

DRUGS (7)
  1. ONSOLIS [Suspect]
     Active Substance: FENTANYL CITRATE
     Indication: PAIN
     Route: 002
     Dates: start: 20100630, end: 20100825
  2. ONSOLIS [Suspect]
     Active Substance: FENTANYL CITRATE
     Indication: PAIN
     Route: 002
     Dates: start: 20100826, end: 2011
  3. METHADONE [Concomitant]
     Active Substance: METHADONE HYDROCHLORIDE
     Indication: PAIN
     Route: 048
  4. ROXICODONE [Concomitant]
     Active Substance: OXYCODONE HYDROCHLORIDE
     Indication: PAIN
     Route: 048
  5. METHADONE [Concomitant]
     Active Substance: METHADONE HYDROCHLORIDE
     Indication: PAIN
     Route: 048
  6. ONSOLIS [Suspect]
     Active Substance: FENTANYL CITRATE
     Indication: PAIN
     Route: 002
     Dates: start: 20100527, end: 20100629
  7. ONSOLIS [Suspect]
     Active Substance: FENTANYL CITRATE
     Indication: PAIN
     Dosage: TITRATE UP TO 4-200 MCG
     Route: 002
     Dates: start: 20100510, end: 20100526

REACTIONS (1)
  - Drug ineffective [Unknown]
